FAERS Safety Report 6992939-8 (Version None)
Quarter: 2010Q3

REPORT INFORMATION
  Report Type: 
  Country: None (occurrence: None)
  Receive Date: 20100916
  Receipt Date: 20100916
  Transmission Date: 20110219
  Serious: Yes (Other)
  Sender: FDA-Public Use
  Company Number: None

PATIENT
  Age: 61 Year
  Sex: Female
  Weight: 74.8435 kg

DRUGS (9)
  1. MARLBORO SILVER 100'S  CIGARETTES [Suspect]
  2. MEICINE TO CLEAR THRUSH [Concomitant]
  3. FISH OIL [Concomitant]
  4. CRESTOR [Concomitant]
  5. MIRAPEX [Concomitant]
  6. PROZAC [Concomitant]
  7. VIT D [Concomitant]
  8. ASPIRIN [Concomitant]
  9. ADDRELL [Concomitant]

REACTIONS (9)
  - DEHYDRATION [None]
  - DIZZINESS [None]
  - EYE DISORDER [None]
  - HEADACHE [None]
  - HYPOTENSION [None]
  - MALAISE [None]
  - NAUSEA [None]
  - PRESYNCOPE [None]
  - STOMATITIS [None]
